FAERS Safety Report 8766937 (Version 3)
Quarter: 2012Q4

REPORT INFORMATION
  Report Type: Report from Study
  Country: CO (occurrence: CO)
  Receive Date: 20120904
  Receipt Date: 20120921
  Transmission Date: 20130627
  Serious: Yes (Other)
  Sender: FDA-Public Use
  Company Number: CO-VERTEX PHARMACEUTICAL INC.-2012-020384

PATIENT
  Age: 65 Year
  Sex: Female

DRUGS (9)
  1. VX-950 [Suspect]
     Indication: HEPATITIS C
     Dosage: UNK
     Route: 048
     Dates: start: 20120816
  2. RIBAVIRIN [Concomitant]
     Indication: PRODUCT USED FOR UNKNOWN INDICATION
     Dosage: UNK
     Route: 065
  3. RIBAVIRIN [Concomitant]
     Dosage: Dosage Form: Unspecified
  4. RIBAVIRIN [Concomitant]
     Dosage: Dosage Form: Unspecified
  5. RIBAVIRIN [Concomitant]
     Dosage: Dosage Form: Unspecified
  6. PEGINTERFERON ALFA [Concomitant]
     Indication: PRODUCT USED FOR UNKNOWN INDICATION
     Dosage: Dosage form: unspecified
     Route: 065
  7. PEGINTERFERON ALFA [Concomitant]
     Dosage: Dosage Form: Unspecified
  8. PEGINTERFERON ALFA [Concomitant]
     Dosage: Dosage Form: Unspecified
  9. PEGINTERFERON ALFA [Concomitant]
     Dosage: Dosage Form: Unspecified

REACTIONS (1)
  - Rash [Recovered/Resolved]
